FAERS Safety Report 25120835 (Version 1)
Quarter: 2025Q1

REPORT INFORMATION
  Report Type: Spontaneous
  Country: US (occurrence: US)
  Receive Date: 20250325
  Receipt Date: 20250325
  Transmission Date: 20250409
  Serious: Yes (Hospitalization)
  Sender: LUNDBECK
  Company Number: US-LUNDBECK-DKLU4009028

PATIENT
  Age: 4 Year
  Sex: Female

DRUGS (1)
  1. SABRIL [Suspect]
     Active Substance: VIGABATRIN
     Indication: Infantile spasms
     Dosage: 18 MILLILITRE
     Route: 048
     Dates: start: 20240926

REACTIONS (1)
  - Hypothermia [Unknown]
